FAERS Safety Report 7036918-3 (Version None)
Quarter: 2010Q4

REPORT INFORMATION
  Report Type: 
  Country: None (occurrence: None)
  Receive Date: 20101011
  Receipt Date: 20100930
  Transmission Date: 20110411
  Serious: Yes (Hospitalization)
  Sender: FDA-Public Use
  Company Number: KR-ASTRAZENECA-2010SE46122

PATIENT
  Age: 21665 Day
  Sex: Male

DRUGS (10)
  1. CRESTOR [Suspect]
     Indication: HYPERLIPIDAEMIA
     Route: 048
     Dates: start: 20041005
  2. NIVADIL [Concomitant]
     Indication: HYPERTENSION
     Dates: start: 20030321
  3. COZAAR [Concomitant]
     Indication: HYPERTENSION
     Dates: start: 20030304
  4. ALDACTONE [Concomitant]
     Indication: CARDIAC FAILURE CONGESTIVE
     Dates: start: 20030304
  5. ALDACTONE [Concomitant]
     Indication: HYPERTENSION
     Dates: start: 20030304
  6. TOREM [Concomitant]
     Indication: CARDIAC FAILURE CONGESTIVE
     Dates: start: 20030304
  7. TOREM [Concomitant]
     Indication: HYPERTENSION
     Dates: start: 20030304
  8. ISMO [Concomitant]
     Indication: ANGINA PECTORIS
     Dates: start: 19990519
  9. PLETAL [Concomitant]
     Indication: ANGINA PECTORIS
     Dates: start: 20030304
  10. MEDIZYME [Concomitant]
     Indication: DYSPEPSIA
     Dates: start: 20000928

REACTIONS (1)
  - INTERVERTEBRAL DISC PROTRUSION [None]
